FAERS Safety Report 15111715 (Version 2)
Quarter: 2018Q3

REPORT INFORMATION
  Report Type: Report from Study
  Country: US (occurrence: US)
  Receive Date: 20180705
  Receipt Date: 20180921
  Transmission Date: 20181010
  Serious: Yes (Other)
  Sender: FDA-Public Use
  Company Number: US-MALLINCKRODT-T201800104

PATIENT
  Age: 58 Year
  Sex: Female

DRUGS (15)
  1. CARBIDOPA LEVODOPA [Concomitant]
     Active Substance: CARBIDOPA\LEVODOPA
     Indication: POLYMYOSITIS
     Dosage: 25/100 MG
     Route: 065
  2. MYCOPHENOLATE [Concomitant]
     Active Substance: MYCOPHENOLIC ACID
     Indication: LUNG DISORDER
     Dosage: 500 MG, TWICE A DAY
     Route: 065
  3. PREDNISONE. [Concomitant]
     Active Substance: PREDNISONE
     Indication: LUNG DISORDER
  4. OXYGEN. [Concomitant]
     Active Substance: OXYGEN
     Indication: LUNG DISORDER
     Dosage: AT NIGHT
     Route: 065
  5. REPOSITORY CORTICOTROPIN INJECTION [Suspect]
     Active Substance: CORTICOTROPIN
     Dosage: 80 UNITS / 1 ML,  2 TIMES PER WEEK
     Route: 058
     Dates: end: 201805
  6. OMEPRAZOLE. [Concomitant]
     Active Substance: OMEPRAZOLE
     Indication: GASTROOESOPHAGEAL REFLUX DISEASE
     Dosage: 20 MG, TWICE A DAY
     Route: 065
  7. ACYCLOVIR. [Concomitant]
     Active Substance: ACYCLOVIR
     Indication: CYTOMEGALOVIRUS INFECTION
     Dosage: 400 MG
     Route: 065
  8. REPOSITORY CORTICOTROPIN INJECTION [Suspect]
     Active Substance: CORTICOTROPIN
     Indication: POLYMYOSITIS
     Dosage: 80 UNITS/1 ML,  2 TIMES PER WEEK MON/THUR
     Route: 058
     Dates: start: 20160307, end: 20171205
  9. PREDNISONE. [Concomitant]
     Active Substance: PREDNISONE
     Indication: MUSCLE DISORDER
     Dosage: 5 MG, DAILY
     Route: 065
  10. AZATHIOPRINE. [Concomitant]
     Active Substance: AZATHIOPRINE
     Indication: MUSCLE DISORDER
  11. BACLOFEN. [Concomitant]
     Active Substance: BACLOFEN
     Indication: MUSCLE DISORDER
     Dosage: 10 MG, TWICE DAY
     Route: 065
  12. AZATHIOPRINE. [Concomitant]
     Active Substance: AZATHIOPRINE
     Indication: LUNG DISORDER
     Dosage: 50 MG, 3 TIMES A DAY
     Route: 065
  13. GABAPENTIN. [Concomitant]
     Active Substance: GABAPENTIN
     Indication: MYALGIA
     Dosage: 300 MG, TWICE A DAY
     Route: 065
  14. REPOSITORY CORTICOTROPIN INJECTION [Suspect]
     Active Substance: CORTICOTROPIN
     Dosage: 80 UNITS/1 ML,  2 TIMES PER WEEK MONDAY/THURSDAY
     Route: 058
  15. SULFAMETHOXAZOLE W/TRIMETHOPRIM [Concomitant]
     Active Substance: SULFAMETHOXAZOLE\TRIMETHOPRIM
     Indication: LUNG DISORDER
     Dosage: 800 MG, 3 TIMES A WEEK
     Route: 065

REACTIONS (13)
  - Malaise [Not Recovered/Not Resolved]
  - Osteoporosis [Not Recovered/Not Resolved]
  - Asthenia [Unknown]
  - Cystitis [Not Recovered/Not Resolved]
  - Pain [Not Recovered/Not Resolved]
  - Muscle enzyme increased [Unknown]
  - Fatigue [Unknown]
  - Influenza [Recovered/Resolved]
  - Nasopharyngitis [Not Recovered/Not Resolved]
  - Drug dose omission [Not Recovered/Not Resolved]
  - Immune system disorder [Not Recovered/Not Resolved]
  - Sinusitis [Unknown]
  - Cytomegalovirus infection [Not Recovered/Not Resolved]

NARRATIVE: CASE EVENT DATE: 201712
